FAERS Safety Report 21580147 (Version 3)
Quarter: 2022Q4

REPORT INFORMATION
  Report Type: Report from Study
  Country: US (occurrence: US)
  Receive Date: 20221110
  Receipt Date: 20221220
  Transmission Date: 20230113
  Serious: Yes (Death, Hospitalization, Other)
  Sender: FDA-Public Use
  Company Number: US-BEIGENE USA INC-BGN-2022-010629

PATIENT

DRUGS (1)
  1. BRUKINSA [Suspect]
     Active Substance: ZANUBRUTINIB
     Indication: Waldenstrom^s macroglobulinaemia
     Dosage: 80 MILLIGRAM, BID
     Route: 048
     Dates: start: 20220920

REACTIONS (9)
  - Death [Fatal]
  - Haematoma infection [Unknown]
  - Haemorrhage intracranial [Unknown]
  - Platelet count decreased [Unknown]
  - Hip fracture [Unknown]
  - Asthenia [Unknown]
  - Fistula [Unknown]
  - Blood pressure fluctuation [Unknown]
  - Prescribed underdose [Unknown]

NARRATIVE: CASE EVENT DATE: 20221017
